FAERS Safety Report 17823040 (Version 1)
Quarter: 2020Q2

REPORT INFORMATION
  Report Type: Spontaneous
  Country: US (occurrence: US)
  Receive Date: 20200524
  Receipt Date: 20200524
  Transmission Date: 20200714
  Serious: Yes (Other)
  Sender: FDA-Public Use
  Company Number: None

PATIENT
  Age: 79 Year
  Sex: Male
  Weight: 69 kg

DRUGS (15)
  1. QUETIAPINE. [Concomitant]
     Active Substance: QUETIAPINE
     Dates: start: 20200519, end: 20200524
  2. LEVOTHYROXINE. [Concomitant]
     Active Substance: LEVOTHYROXINE
     Dates: start: 20200519, end: 20200524
  3. SENNA [Concomitant]
     Active Substance: SENNA LEAF\SENNOSIDES\SENNOSIDES A AND B
     Dates: start: 20200519, end: 20200524
  4. NOREPINEPHRINE. [Concomitant]
     Active Substance: NOREPINEPHRINE
     Dates: start: 20200519, end: 20200524
  5. VASOPRESSIN. [Concomitant]
     Active Substance: VASOPRESSIN
     Dates: start: 20200523, end: 20200524
  6. REMDESIVIR. [Suspect]
     Active Substance: REMDESIVIR
     Indication: COVID-19
     Route: 040
     Dates: start: 20200518, end: 20200523
  7. PANTOPRAZOLE [Concomitant]
     Active Substance: PANTOPRAZOLE
     Dates: start: 20200519, end: 20200524
  8. FENTANYL. [Concomitant]
     Active Substance: FENTANYL
     Dates: start: 20200519, end: 20200524
  9. HEPARIN [Concomitant]
     Active Substance: HEPARIN SODIUM
     Dates: start: 20200523, end: 20200524
  10. INSULIN REGULAR [Concomitant]
     Active Substance: INSULIN NOS
     Dates: start: 20200519, end: 20200524
  11. LACTULOSE. [Concomitant]
     Active Substance: LACTULOSE
     Dates: start: 20200523, end: 20200524
  12. ATORVASTATIN [Concomitant]
     Active Substance: ATORVASTATIN
     Dates: start: 20200518, end: 20200524
  13. PROPOFOL. [Concomitant]
     Active Substance: PROPOFOL
     Dates: start: 20200518, end: 20200524
  14. ASPIRIN. [Concomitant]
     Active Substance: ASPIRIN
     Dates: start: 20200518, end: 20200524
  15. HYDROCORTISONE. [Concomitant]
     Active Substance: HYDROCORTISONE
     Dates: start: 20200523, end: 20200524

REACTIONS (1)
  - Acute kidney injury [None]

NARRATIVE: CASE EVENT DATE: 20200524
